FAERS Safety Report 6031025-0 (Version None)
Quarter: 2009Q1

REPORT INFORMATION
  Report Type: 
  Country: None (occurrence: None)
  Receive Date: 20090108
  Receipt Date: 20090105
  Transmission Date: 20090719
  Serious: Yes (Other)
  Sender: FDA-Public Use
  Company Number: CN-JNJFOC-20081200453

PATIENT
  Sex: Female

DRUGS (1)
  1. RISPERDAL [Suspect]
     Indication: SCHIZOPHRENIA
     Dosage: 1 MG OR 1.5 MG PER DAY
     Route: 048

REACTIONS (2)
  - OVARIAN NEOPLASM [None]
  - RECURRENT CANCER [None]
